FAERS Safety Report 8197652-X (Version None)
Quarter: 2012Q1

REPORT INFORMATION
  Report Type: 
  Country: None (occurrence: None)
  Receive Date: 20120309
  Receipt Date: 20120228
  Transmission Date: 20120608
  Serious: Yes (Hospitalization)
  Sender: FDA-Public Use
  Company Number: US-ROCHE-1044337

PATIENT
  Sex: Female
  Weight: 70.8 kg

DRUGS (8)
  1. CELEXA [Concomitant]
  2. AVASTIN [Suspect]
     Indication: MENINGIOMA
     Route: 042
     Dates: start: 20101208, end: 20120213
  3. BENADRYL [Concomitant]
  4. IBUPROFEN [Concomitant]
  5. LOPERAMIDE HCL [Concomitant]
  6. TREXIMET [Concomitant]
     Indication: MIGRAINE
     Dosage: 85-500MG AT ONSET
  7. TYLENOL [Concomitant]
     Dosage: 25-500 PRN
  8. NAPROXEN [Concomitant]

REACTIONS (2)
  - LIPASE INCREASED [None]
  - PANCREATITIS [None]
